FAERS Safety Report 20671354 (Version 1)
Quarter: 2022Q2

REPORT INFORMATION
  Report Type: Spontaneous
  Country: US (occurrence: US)
  Receive Date: 20220404
  Receipt Date: 20220404
  Transmission Date: 20220720
  Serious: No
  Sender: FDA-Public Use
  Company Number: US-SA-SAC20220331000890

PATIENT
  Age: 4 Year

DRUGS (1)
  1. LUMIZYME [Suspect]
     Active Substance: ALGLUCOSIDASE ALFA
     Indication: Glycogen storage disease type II
     Dosage: UNK

REACTIONS (4)
  - Muscular weakness [Unknown]
  - Weight bearing difficulty [Unknown]
  - Hypotonia [Unknown]
  - Grip strength decreased [Unknown]
